FAERS Safety Report 8369994-6 (Version None)
Quarter: 2012Q1

REPORT INFORMATION
  Report Type: 
  Country: None (occurrence: None)
  Receive Date: 20120323
  Receipt Date: 20111018
  Transmission Date: 20120608
  Serious: Yes (Other)
  Sender: FDA-Public Use
  Company Number: 163-21880-11063457

PATIENT
  Age: 75 Year
  Sex: Female
  Weight: 63.5036 kg

DRUGS (24)
  1. VITAMIN D [Concomitant]
  2. XANAX [Concomitant]
  3. REVLIMID [Suspect]
  4. LOPRESSOR [Concomitant]
  5. CALCIUM PLUS VITAMIN D (OS-CAL) [Concomitant]
  6. FISH OIL (FISH OIL) [Concomitant]
  7. MUCINEX [Concomitant]
  8. MEDICATED MOUTHWASH (ALL OTHER THERAPEUTIC PRODUCTS) [Concomitant]
  9. REVLIMID [Suspect]
     Indication: MULTIPLE MYELOMA
     Dosage: 25 MG, 21/7, PO
     Route: 048
     Dates: start: 20110606
  10. NEURONTIN [Concomitant]
  11. SYNTHROID [Concomitant]
  12. DEXAMETHASONE [Concomitant]
  13. DICYCLOMINE [Concomitant]
  14. STEROID (STEROID ANTIBACTERIALS) [Concomitant]
  15. B COMPLEX ELX [Concomitant]
  16. ASPIRIN [Concomitant]
  17. SINGULAIR [Concomitant]
  18. METAMUCIL (METAMUCIL ^PROCTOR + GAMBLE^) [Concomitant]
  19. REVLIMID [Suspect]
  20. ZITHROMAX [Concomitant]
  21. ZOMETA [Concomitant]
  22. ANTIBIOTICS (ANTIBIOTICS) [Concomitant]
  23. MULTIVITAMIN [Concomitant]
  24. ZOLOFT [Concomitant]

REACTIONS (13)
  - JOINT SWELLING [None]
  - FATIGUE [None]
  - CONSTIPATION [None]
  - MUSCLE SPASMS [None]
  - OROPHARYNGEAL PAIN [None]
  - ABDOMINAL RIGIDITY [None]
  - HAEMORRHOIDS [None]
  - BRONCHITIS [None]
  - ORAL MUCOSAL ERYTHEMA [None]
  - ASTHENOPIA [None]
  - NEUROPATHY PERIPHERAL [None]
  - SINUS DISORDER [None]
  - DRY MOUTH [None]
